FAERS Safety Report 5648193-2 (Version None)
Quarter: 2008Q1

REPORT INFORMATION
  Report Type: 
  Country: None (occurrence: None)
  Receive Date: 20080229
  Receipt Date: 20080118
  Transmission Date: 20080703
  Serious: Yes (Other)
  Sender: FDA-Public Use
  Company Number: 2008AL001103

PATIENT
  Age: 27 Year
  Sex: Male

DRUGS (3)
  1. METOCLOPRAMIDE [Suspect]
     Dosage: 10 MG; TID; PO
     Route: 048
     Dates: start: 20080111, end: 20080112
  2. FLUOXETINE [Suspect]
     Dosage: PO
     Route: 048
     Dates: start: 20070101
  3. AMOXICILLIN [Concomitant]

REACTIONS (2)
  - DRUG INTERACTION [None]
  - DYSTONIA [None]
